FAERS Safety Report 7771159-3 (Version None)
Quarter: 2011Q3

REPORT INFORMATION
  Report Type: 
  Country: None (occurrence: None)
  Receive Date: 20110922
  Receipt Date: 20100830
  Transmission Date: 20111222
  Serious: No
  Sender: FDA-Public Use
  Company Number: US-ASTRAZENECA-2007UW05623

PATIENT
  Age: 17144 Day
  Sex: Male
  Weight: 99.8 kg

DRUGS (12)
  1. SEROQUEL [Suspect]
     Dosage: 300 MG
     Route: 048
     Dates: start: 20030101, end: 20060815
  2. ATIVAN [Concomitant]
     Indication: DEPRESSION
     Dosage: 2 MG
     Dates: start: 20060815
  3. ABILIFY [Concomitant]
     Dosage: 10 MG
     Dates: start: 20060815, end: 20060822
  4. SEROQUEL [Suspect]
     Indication: BIPOLAR DISORDER
     Dosage: 100-600 MG
     Route: 048
     Dates: start: 20000410, end: 20060301
  5. AMBIEN [Concomitant]
     Dosage: 10 MG
     Dates: start: 20060101
  6. SEROQUEL [Suspect]
     Dosage: 300 MG
     Route: 048
     Dates: start: 20030101, end: 20060815
  7. HALDOL [Concomitant]
     Dosage: 5 MG
     Dates: start: 20060101
  8. SEROQUEL [Suspect]
     Indication: ANXIETY
     Dosage: 100-600 MG
     Route: 048
     Dates: start: 20000410, end: 20060301
  9. SEROQUEL [Suspect]
     Dosage: 300 MG
     Route: 048
     Dates: start: 20030101, end: 20060815
  10. PAXIL [Concomitant]
     Dosage: 25 MG-30 MG
     Dates: start: 20050101
  11. SEROQUEL [Suspect]
     Indication: DEPRESSION
     Dosage: 100-600 MG
     Route: 048
     Dates: start: 20000410, end: 20060301
  12. TRAZODONE HCL [Concomitant]
     Dosage: 100 MG
     Dates: start: 20060101

REACTIONS (8)
  - BLOOD CHOLESTEROL INCREASED [None]
  - BLOOD TRIGLYCERIDES INCREASED [None]
  - CHEST PAIN [None]
  - HYPERLIPIDAEMIA [None]
  - WEIGHT INCREASED [None]
  - DYSPNOEA [None]
  - OBESITY [None]
  - TYPE 2 DIABETES MELLITUS [None]
